FAERS Safety Report 9026257 (Version 1)
Quarter: 2013Q1

REPORT INFORMATION
  Report Type: Spontaneous
  Country: AR (occurrence: None)
  Receive Date: 20130104
  Receipt Date: 20130104
  Transmission Date: 20140127
  Serious: Yes (Other)
  Sender: FDA-Public Use
  Company Number: 2012P1068311

PATIENT
  Age: 10 Year
  Sex: 0

DRUGS (3)
  1. ISONIAZID [Suspect]
     Indication: TUBERCULOSIS
  2. RIFAMPIN [Suspect]
  3. PYRAZINAMIDE [Suspect]

REACTIONS (2)
  - Acute hepatic failure [None]
  - Hepatotoxicity [None]
